FAERS Safety Report 14134907 (Version 1)
Quarter: 2017Q4

REPORT INFORMATION
  Report Type: Spontaneous
  Country: US (occurrence: US)
  Receive Date: 20171027
  Receipt Date: 20171027
  Transmission Date: 20180321
  Serious: No
  Sender: FDA-Public Use
  Company Number: US-LANNETT COMPANY, INC.-US-2017LAN001040

PATIENT

DRUGS (1)
  1. BUTALBITAL, ACETAMINOPHEN, AND CAFFEINE [Suspect]
     Active Substance: ACETAMINOPHEN\BUTALBITAL\CAFFEINE
     Indication: HEADACHE
     Dosage: 3 TABLETS (DOSE UNKNOWN) A DAY, AS NEEDED.
     Route: 048

REACTIONS (3)
  - Injury [Unknown]
  - Stress [Unknown]
  - Rash [Not Recovered/Not Resolved]

NARRATIVE: CASE EVENT DATE: 201703
